FAERS Safety Report 4387835-9 (Version None)
Quarter: 2004Q2

REPORT INFORMATION
  Report Type: 
  Country: None (occurrence: None)
  Receive Date: 20040623
  Receipt Date: 20040607
  Transmission Date: 20050107
  Serious: Yes (Other)
  Sender: FDA-Public Use
  Company Number: USA030843996

PATIENT
  Age: 69 Year
  Sex: Male
  Weight: 45 kg

DRUGS (3)
  1. FORTEO [Suspect]
     Indication: OSTEOPOROSIS
     Dosage: 20 UG/1 DAY
     Dates: start: 20030224, end: 20030801
  2. PLAQUINOL (HYDROCHLOOROQUINE SULFATE) [Concomitant]
  3. THYROID TAB [Concomitant]

REACTIONS (4)
  - ERYTHEMA [None]
  - INFLAMMATION [None]
  - PAIN [None]
  - SQUAMOUS CELL CARCINOMA [None]
